FAERS Safety Report 8594991-5 (Version None)
Quarter: 2012Q3

REPORT INFORMATION
  Report Type: 
  Country: None (occurrence: None)
  Receive Date: 20120815
  Receipt Date: 20120809
  Transmission Date: 20120928
  Serious: Yes (Hospitalization, Other)
  Sender: FDA-Public Use
  Company Number: PHHY2012BR069735

PATIENT
  Age: 59 Year
  Sex: Female

DRUGS (2)
  1. DIOVAN HCT [Suspect]
     Indication: HYPERTENSION
     Dosage: 1 DF (160/12.5MG) DAILY
  2. HERBALIFE PRODUCTS [Concomitant]
     Indication: WEIGHT DECREASED
     Dosage: UNK UKN, UNK

REACTIONS (17)
  - WEIGHT DECREASED [None]
  - STRESS [None]
  - MYOCARDIAL INFARCTION [None]
  - PALPITATIONS [None]
  - LOSS OF CONSCIOUSNESS [None]
  - TACHYCARDIA [None]
  - ARTHRALGIA [None]
  - SYNCOPE [None]
  - PARAESTHESIA [None]
  - BLOOD URIC ACID INCREASED [None]
  - NAUSEA [None]
  - FEAR [None]
  - BACK PAIN [None]
  - HYPOAESTHESIA [None]
  - AMNESIA [None]
  - TREMOR [None]
  - MALAISE [None]
